FAERS Safety Report 8533744-0 (Version None)
Quarter: 2012Q3

REPORT INFORMATION
  Report Type: 
  Country: None (occurrence: None)
  Receive Date: 20120724
  Receipt Date: 20120710
  Transmission Date: 20120928
  Serious: Yes (Other)
  Sender: FDA-Public Use
  Company Number: DE-FRI-1000036594

PATIENT
  Sex: Female

DRUGS (7)
  1. DIPIPERON [Concomitant]
     Dosage: 40 MG
     Route: 048
     Dates: start: 20120405
  2. LITHIUM CARBONATE [Interacting]
     Dosage: 900 MG
     Route: 048
     Dates: start: 20120316, end: 20120402
  3. LITHIUM CARBONATE [Interacting]
     Dosage: 1125 MG
     Route: 048
     Dates: start: 20120403, end: 20120418
  4. CITALOPRAM HYDROBROMIDE [Interacting]
     Dosage: 20 MG
     Route: 048
     Dates: start: 20120315
  5. LITHIUM CARBONATE [Interacting]
     Dosage: 675 MG
     Route: 048
     Dates: start: 20120129, end: 20120315
  6. CITALOPRAM HYDROBROMIDE [Suspect]
     Dosage: 10 MG
     Route: 048
     Dates: start: 20120313, end: 20120314
  7. LITHIUM CARBONATE [Interacting]
     Dosage: 900 MG
     Route: 048
     Dates: start: 20120419

REACTIONS (3)
  - DRY MOUTH [None]
  - DYSGEUSIA [None]
  - POTENTIATING DRUG INTERACTION [None]
